FAERS Safety Report 7562854-X (Version None)
Quarter: 2011Q2

REPORT INFORMATION
  Report Type: 
  Country: None (occurrence: None)
  Receive Date: 20110622
  Receipt Date: 20110614
  Transmission Date: 20111010
  Serious: Yes (Hospitalization)
  Sender: FDA-Public Use
  Company Number: IT-ROCHE-759140

PATIENT
  Sex: Female
  Weight: 65 kg

DRUGS (9)
  1. BEVACIZUMAB [Suspect]
     Dosage: PERMANANTLY DISCONTINUED
     Route: 042
     Dates: start: 20110128, end: 20110205
  2. OLMESARTAN MEDOXOMIL [Concomitant]
  3. CAPECITABINE [Suspect]
     Route: 042
  4. NEBIVOLOLO CLORIDRATO [Concomitant]
  5. BEVACIZUMAB [Suspect]
     Dosage: FORM :INFUSION
     Route: 042
     Dates: start: 20110107
  6. DOCETAXEL [Suspect]
     Dosage: VIALS
     Route: 042
     Dates: start: 20100929
  7. DOCETAXEL [Suspect]
     Dosage: FORM :INFUSION
     Route: 042
     Dates: start: 20110107
  8. BEVACIZUMAB [Suspect]
     Dosage: VIALS
     Route: 042
     Dates: start: 20100929
  9. DOCETAXEL [Suspect]
     Dosage: PERMANANTLY DISCONTINUED
     Route: 042
     Dates: start: 20110128, end: 20110205

REACTIONS (1)
  - ATRIAL FIBRILLATION [None]
